FAERS Safety Report 13145628 (Version 8)
Quarter: 2017Q4

REPORT INFORMATION
  Report Type: Report from Study
  Country: US (occurrence: US)
  Receive Date: 20170124
  Receipt Date: 20171107
  Transmission Date: 20180320
  Serious: Yes (Death, Hospitalization, Other)
  Sender: FDA-Public Use
  Company Number: US-ACTELION-A-US2017-148682

PATIENT
  Age: 57 Year
  Sex: Male
  Weight: 72.56 kg

DRUGS (11)
  1. CRESTOR [Concomitant]
     Active Substance: ROSUVASTATIN CALCIUM
  2. ALDACTONE [Concomitant]
     Active Substance: SPIRONOLACTONE
  3. FUROSEMIDE. [Concomitant]
     Active Substance: FUROSEMIDE
  4. VELETRI [Suspect]
     Active Substance: EPOPROSTENOL
     Indication: PULMONARY HYPERTENSION
     Dosage: 43.3 NG/KG, PER MIN
     Route: 042
     Dates: start: 20151029
  5. TRAMADOL. [Concomitant]
     Active Substance: TRAMADOL
  6. ADEMPAS [Concomitant]
     Active Substance: RIOCIGUAT
  7. DIGOXIN. [Concomitant]
     Active Substance: DIGOXIN
  8. REQUIP [Concomitant]
     Active Substance: ROPINIROLE HYDROCHLORIDE
  9. ACIPHEX [Concomitant]
     Active Substance: RABEPRAZOLE SODIUM
  10. IRON [Concomitant]
     Active Substance: IRON
  11. OPSUMIT [Suspect]
     Active Substance: MACITENTAN
     Indication: PULMONARY HYPERTENSION
     Dosage: 10 MG, UNK
     Route: 048
     Dates: start: 20160130

REACTIONS (13)
  - Cholecystectomy [Recovered/Resolved]
  - Renal disorder [Unknown]
  - Clostridium difficile infection [Not Recovered/Not Resolved]
  - Lung disorder [Not Recovered/Not Resolved]
  - Abdominal pain [Recovered/Resolved]
  - Pulmonary hypertension [Fatal]
  - Pneumonia [Unknown]
  - Hypotension [Recovering/Resolving]
  - Dyspnoea [Unknown]
  - Probiotic therapy [Unknown]
  - Gastrooesophageal reflux disease [Not Recovered/Not Resolved]
  - Gallbladder pain [Unknown]
  - Pancreatitis [Recovered/Resolved]

NARRATIVE: CASE EVENT DATE: 201709
